FAERS Safety Report 23877880 (Version 2)
Quarter: 2024Q2

REPORT INFORMATION
  Report Type: Report from Study
  Country: US (occurrence: US)
  Receive Date: 20240521
  Receipt Date: 20240620
  Transmission Date: 20240715
  Serious: Yes (Hospitalization, Other)
  Sender: FDA-Public Use
  Company Number: US-GILEAD-2024-0659203

PATIENT
  Sex: Female

DRUGS (5)
  1. AMBRISENTAN [Suspect]
     Active Substance: AMBRISENTAN
     Indication: Pulmonary arterial hypertension
     Dosage: 10 MG, QD
     Route: 065
     Dates: start: 20220406
  2. AMBRISENTAN [Suspect]
     Active Substance: AMBRISENTAN
     Dosage: 10 MG, QD
     Route: 065
     Dates: start: 20220406
  3. UPTRAVI [Concomitant]
     Active Substance: SELEXIPAG
     Dosage: 400 UG
     Route: 065
  4. UPTRAVI [Concomitant]
     Active Substance: SELEXIPAG
     Dosage: 600 UG
     Route: 065
  5. ADCIRCA [Concomitant]
     Active Substance: TADALAFIL

REACTIONS (4)
  - Hip arthroplasty [Unknown]
  - Pain in jaw [Unknown]
  - Headache [Unknown]
  - Migraine [Unknown]
